FAERS Safety Report 23945260 (Version 1)
Quarter: 2024Q2

REPORT INFORMATION
  Report Type: Spontaneous
  Country: US (occurrence: None)
  Receive Date: 20240605
  Receipt Date: 20240605
  Transmission Date: 20240716
  Serious: No
  Sender: FDA-Public Use
  Company Number: None

PATIENT
  Age: 52 Year
  Sex: Female

DRUGS (1)
  1. ENTYVIO [Suspect]
     Active Substance: VEDOLIZUMAB
     Indication: Colitis ulcerative
     Dosage: INFUSE 300MG INTRAVENOUSLY EVERY 8 WEEKS AS DIRECTED.   ?
     Route: 042
     Dates: start: 202402

REACTIONS (2)
  - Emergency care [None]
  - Ill-defined disorder [None]
